FAERS Safety Report 10547207 (Version 1)
Quarter: 2014Q4

REPORT INFORMATION
  Report Type: Report from Study
  Country: BR (occurrence: BR)
  Receive Date: 20141027
  Receipt Date: 20141027
  Transmission Date: 20150529
  Serious: Yes (Other)
  Sender: FDA-Public Use
  Company Number: PHHY2014BR139970

PATIENT
  Sex: Female
  Weight: 79 kg

DRUGS (1)
  1. DIOVAN AMLO FIX [Suspect]
     Active Substance: AMLODIPINE\VALSARTAN
     Indication: HYPERTENSION
     Dosage: UNK UKN, QD (IN THE MORNING)
     Route: 048
     Dates: end: 201408

REACTIONS (5)
  - Cataract [Unknown]
  - Weight increased [Unknown]
  - Visual impairment [Unknown]
  - Drug ineffective [Unknown]
  - Head discomfort [Unknown]
